FAERS Safety Report 4758476-6 (Version None)
Quarter: 2005Q3

REPORT INFORMATION
  Report Type: 
  Country: None (occurrence: None)
  Receive Date: 20050830
  Receipt Date: 20050830
  Transmission Date: 20060218
  Serious: Yes (Other)
  Sender: FDA-Public Use
  Company Number: None

PATIENT
  Age: 59 Year
  Sex: Female
  Weight: 56.6996 kg

DRUGS (11)
  1. FOSAMAX [Suspect]
     Indication: OSTEOPENIA
     Dosage: ONE 70 MG TABLET    ONCE WEEKLY
     Dates: start: 20050822, end: 20050829
  2. VITAMIN B-12 [Concomitant]
  3. VITAMIN B6 [Concomitant]
  4. MULTI-VITAMIN [Concomitant]
  5. HORSECHESNUT [Concomitant]
  6. PREMARIN [Concomitant]
  7. ASPIRIN [Concomitant]
  8. OMEGA 3 FISH OIL [Concomitant]
  9. GARLIC [Concomitant]
  10. MAGNESIUM [Concomitant]
  11. RESTASIS [Concomitant]

REACTIONS (8)
  - ABDOMINAL DISTENSION [None]
  - BLOOD PRESSURE INCREASED [None]
  - DIARRHOEA [None]
  - DYSPHAGIA [None]
  - FLATULENCE [None]
  - GASTRIC DISORDER [None]
  - HEADACHE [None]
  - PALPITATIONS [None]
